FAERS Safety Report 6982408-3 (Version None)
Quarter: 2010Q3

REPORT INFORMATION
  Report Type: 
  Country: None (occurrence: None)
  Receive Date: 20100914
  Receipt Date: 20100125
  Transmission Date: 20110219
  Serious: No
  Sender: FDA-Public Use
  Company Number: US-PFIZER INC-2009306699

PATIENT
  Sex: Male
  Weight: 106 kg

DRUGS (3)
  1. LYRICA [Suspect]
     Indication: PAIN
     Dosage: UNK
  2. CYMBALTA [Suspect]
     Indication: MYALGIA
     Dosage: UNK
     Dates: start: 20090101, end: 20090101
  3. FLEXERIL [Concomitant]
     Dosage: UNK

REACTIONS (7)
  - BURNING SENSATION [None]
  - DRUG INEFFECTIVE [None]
  - FEELING ABNORMAL [None]
  - FEELING HOT [None]
  - HEADACHE [None]
  - HYPERAESTHESIA [None]
  - MYALGIA [None]
